FAERS Safety Report 9012121 (Version 1)
Quarter: 2013Q1

REPORT INFORMATION
  Report Type: Spontaneous
  Country: US (occurrence: US)
  Receive Date: 20130114
  Receipt Date: 20130114
  Transmission Date: 20140127
  Serious: No
  Sender: FDA-Public Use
  Company Number: US-PFIZER INC-2013012654

PATIENT
  Age: 85 Year
  Sex: Female

DRUGS (3)
  1. LYRICA [Suspect]
     Dosage: 50 MG, 3X/DAY
  2. LORAZEPAM [Suspect]
     Dosage: UNK, PRN
  3. HYDROMORPHONE [Suspect]
     Dosage: UNK, AS NEEDED

REACTIONS (1)
  - Confusional state [Unknown]
